FAERS Safety Report 7778485-2 (Version None)
Quarter: 2011Q3

REPORT INFORMATION
  Report Type: 
  Country: None (occurrence: None)
  Receive Date: 20110926
  Receipt Date: 20110916
  Transmission Date: 20111222
  Serious: Yes (Hospitalization)
  Sender: FDA-Public Use
  Company Number: DK-MPIJNJ-2011-04325

PATIENT

DRUGS (7)
  1. VELCADE [Suspect]
     Indication: MULTIPLE MYELOMA
     Dosage: UNK
     Dates: start: 20110718, end: 20110811
  2. FORTECORTIN                        /00016001/ [Suspect]
     Indication: MULTIPLE MYELOMA
     Dosage: UNK
     Route: 048
     Dates: start: 20110718, end: 20110816
  3. DURAGESIC-100 [Concomitant]
     Indication: ANALGESIC THERAPY
     Dosage: UNK
     Route: 065
     Dates: start: 20110624
  4. CENTYL [Concomitant]
     Indication: DIURETIC THERAPY
     Dosage: 2.5 MG, UNK
     Route: 065
     Dates: start: 20110622
  5. MAGNESIUM HYDROXIDE TAB [Concomitant]
     Indication: CONSTIPATION
     Dosage: 500 MG, UNK
     Route: 065
  6. SIMETHICONE [Concomitant]
     Indication: FLATULENCE
     Dosage: 240 MG, UNK
     Route: 065
     Dates: start: 20110815
  7. PANTOPRAZOLE [Concomitant]
     Dosage: 40 MG, UNK
     Route: 065
     Dates: start: 20110815

REACTIONS (2)
  - SYNCOPE [None]
  - ABDOMINAL DISTENSION [None]
